FAERS Safety Report 4982853-1 (Version None)
Quarter: 2006Q2

REPORT INFORMATION
  Report Type: 
  Country: None (occurrence: None)
  Receive Date: 20060420
  Receipt Date: 20060406
  Transmission Date: 20061013
  Serious: Yes (Other)
  Sender: FDA-Public Use
  Company Number: 8016121

PATIENT
  Age: 24 Month
  Sex: Male

DRUGS (3)
  1. KEPPRA [Suspect]
     Indication: CONVULSION
     Dosage: PO
     Route: 048
     Dates: end: 20060404
  2. KEPPRA [Suspect]
     Indication: CONVULSION
     Dosage: PO
     Route: 048
     Dates: start: 20060405, end: 20060405
  3. KEPPRA [Suspect]
     Indication: CONVULSION
     Dosage: PO
     Route: 048
     Dates: start: 20060406

REACTIONS (2)
  - INCORRECT DOSE ADMINISTERED [None]
  - MEDICATION ERROR [None]
